FAERS Safety Report 12188462 (Version 1)
Quarter: 2016Q1

REPORT INFORMATION
  Report Type: Report from Study
  Country: US (occurrence: US)
  Receive Date: 20160317
  Receipt Date: 20160317
  Transmission Date: 20160526
  Serious: Yes (Other)
  Sender: FDA-Public Use
  Company Number: US-GILEAD-2016-0203720

PATIENT
  Age: 38 Year
  Sex: Female

DRUGS (2)
  1. AMBRISENTAN [Suspect]
     Active Substance: AMBRISENTAN
     Indication: PRODUCT USED FOR UNKNOWN INDICATION
     Dosage: 10 MG, QD
     Route: 065
     Dates: start: 20120521
  2. ADCIRCA [Concomitant]
     Active Substance: TADALAFIL

REACTIONS (8)
  - Cellulitis [Unknown]
  - Hypotension [Unknown]
  - Pain [Unknown]
  - Diarrhoea [Unknown]
  - Dehydration [Unknown]
  - Syncope [Unknown]
  - Thrombosis [Unknown]
  - Fatigue [Unknown]
